FAERS Safety Report 7538090-X (Version None)
Quarter: 2011Q2

REPORT INFORMATION
  Report Type: 
  Country: None (occurrence: None)
  Receive Date: 20110609
  Receipt Date: 20010418
  Transmission Date: 20111010
  Serious: Yes (Death, Hospitalization)
  Sender: FDA-Public Use
  Company Number: PHEH2001US03579

PATIENT
  Age: 63 Year
  Sex: Male

DRUGS (1)
  1. SANDIMMUNE [Suspect]
     Indication: RENAL TRANSPLANT
     Dosage: 50 MG, QD
     Route: 048
     Dates: start: 19990319, end: 20001025

REACTIONS (4)
  - RESPIRATORY ARREST [None]
  - SEPSIS [None]
  - DIZZINESS [None]
  - DIARRHOEA [None]
